FAERS Safety Report 5403653-4 (Version None)
Quarter: 2007Q3

REPORT INFORMATION
  Report Type: 
  Country: None (occurrence: None)
  Receive Date: 20070802
  Receipt Date: 20070725
  Transmission Date: 20080115
  Serious: Yes (Other)
  Sender: FDA-Public Use
  Company Number: PHMT2007CA01601

PATIENT
  Age: 36 Year
  Sex: Female
  Weight: 111.11 kg

DRUGS (2)
  1. SANDOSTATIN LAR [Suspect]
     Indication: ACROMEGALY
     Dosage: 30 MG EVERY 28 DAYS
     Route: 030
     Dates: start: 20020101
  2. LISINOPRIL [Concomitant]
     Indication: HYPERTENSION
     Dosage: 10 MG, UNK
     Route: 048
     Dates: start: 20030101, end: 20060901

REACTIONS (1)
  - ABORTION SPONTANEOUS [None]
